FAERS Safety Report 23273792 (Version 4)
Quarter: 2024Q1

REPORT INFORMATION
  Report Type: Spontaneous
  Country: AU (occurrence: AU)
  Receive Date: 20231207
  Receipt Date: 20240221
  Transmission Date: 20240410
  Serious: Yes (Hospitalization)
  Sender: FDA-Public Use
  Company Number: AU-BRISTOL-MYERS SQUIBB COMPANY-2023-151093

PATIENT
  Age: 25 Year
  Sex: Male

DRUGS (1)
  1. THALOMID [Suspect]
     Active Substance: THALIDOMIDE
     Indication: Immune reconstitution inflammatory syndrome associated tuberculosis
     Dates: start: 20231019

REACTIONS (2)
  - Off label use [Unknown]
  - Pyrexia [Recovered/Resolved]
